FAERS Safety Report 4545055-9 (Version None)
Quarter: 2004Q4

REPORT INFORMATION
  Report Type: 
  Country: None (occurrence: None)
  Receive Date: 20041230
  Receipt Date: 20041217
  Transmission Date: 20050328
  Serious: Yes (Hospitalization, Other)
  Sender: FDA-Public Use
  Company Number: 2004115101

PATIENT
  Age: 75 Year
  Sex: Male
  Weight: 62.5964 kg

DRUGS (1)
  1. CELEBREX [Suspect]
     Indication: SPINAL COLUMN STENOSIS
     Dosage: 300 MG (100 MG, 1 IN 1 D), ORAL
     Route: 048
     Dates: end: 20020601

REACTIONS (5)
  - COMA [None]
  - CONDITION AGGRAVATED [None]
  - CONVULSION [None]
  - RENAL FAILURE ACUTE [None]
  - SPINAL COLUMN STENOSIS [None]
